FAERS Safety Report 9639981 (Version 1)
Quarter: 2013Q4

REPORT INFORMATION
  Report Type: Spontaneous
  Country: US (occurrence: US)
  Receive Date: 20131023
  Receipt Date: 20131023
  Transmission Date: 20140711
  Serious: No
  Sender: FDA-Public Use
  Company Number: US-B.I. PHARMACEUTICALS,INC./RIDGEFIELD-2013-BI-29518BP

PATIENT
  Age: 65 Year
  Sex: Female
  Weight: 77 kg

DRUGS (1)
  1. ZANTAC (RANITIDINE HYDROCHLORIDE) [Suspect]
     Indication: URTICARIA
     Route: 048
     Dates: start: 201307

REACTIONS (3)
  - Therapeutic response unexpected [Not Recovered/Not Resolved]
  - Off label use [Not Recovered/Not Resolved]
  - Medication error [Not Recovered/Not Resolved]
